FAERS Safety Report 9508857 (Version 1)
Quarter: 2013Q3

REPORT INFORMATION
  Report Type: Spontaneous
  Country: US (occurrence: US)
  Receive Date: 20130909
  Receipt Date: 20130909
  Transmission Date: 20140515
  Serious: No
  Sender: FDA-Public Use
  Company Number: US-BRISTOL-MYERS SQUIBB COMPANY-17399106

PATIENT
  Age: 10 Year
  Sex: Male

DRUGS (1)
  1. ABILIFY TABS [Suspect]

REACTIONS (3)
  - Abnormal behaviour [Unknown]
  - Urinary tract disorder [Unknown]
  - Wrong technique in drug usage process [Unknown]
